FAERS Safety Report 5125262-7 (Version None)
Quarter: 2006Q4

REPORT INFORMATION
  Report Type: 
  Country: None (occurrence: None)
  Receive Date: 20061006
  Receipt Date: 20060926
  Transmission Date: 20070319
  Serious: Yes (Other)
  Sender: FDA-Public Use
  Company Number: 2006108704

PATIENT
  Age: 74 Year
  Sex: Female
  Weight: 44.4525 kg

DRUGS (8)
  1. BENADRYL [Suspect]
     Indication: HELICOBACTER GASTRITIS
     Dosage: 1 TEASPOON EVERY 8 HOURS, ORAL
     Route: 048
     Dates: start: 20060828, end: 20060909
  2. FLAGYL [Suspect]
     Indication: HELICOBACTER GASTRITIS
     Dosage: 500 MG 3 TIMES DAILY, ORAL
     Route: 048
     Dates: start: 20060828
  3. TETRACYCLINE [Suspect]
     Indication: HELICOBACTER GASTRITIS
     Dosage: 500 MG 4 TIMES DAILY
     Dates: start: 20060828
  4. PANTOPRAZOLE SODIUM [Suspect]
     Indication: HELICOBACTER GASTRITIS
     Dosage: 40 MG TWICE DAILY
     Dates: start: 20060828
  5. BENADRYL [Concomitant]
  6. FLAGYL [Concomitant]
  7. TETRACYCLINE [Concomitant]
  8. PANTOPRAZOLE SODIUM [Concomitant]

REACTIONS (2)
  - HALLUCINATION [None]
  - TREMOR [None]
